FAERS Safety Report 8131673-8 (Version None)
Quarter: 2012Q1

REPORT INFORMATION
  Report Type: 
  Country: None (occurrence: None)
  Receive Date: 20120208
  Receipt Date: 20120130
  Transmission Date: 20120608
  Serious: Yes (Other)
  Sender: FDA-Public Use
  Company Number: 2012SP005647

PATIENT
  Sex: Male

DRUGS (3)
  1. VICTRELIS [Suspect]
     Indication: HEPATITIS C
     Dates: start: 20111126
  2. RIBAVIRIN [Suspect]
     Indication: HEPATITIS C
     Dates: start: 20111021
  3. PEG-INTRON [Suspect]
     Indication: HEPATITIS C
     Dates: start: 20111021

REACTIONS (5)
  - MUSCLE SPASMS [None]
  - INJECTION SITE RASH [None]
  - COUGH [None]
  - SINUSITIS [None]
  - THYROID FUNCTION TEST ABNORMAL [None]
